FAERS Safety Report 13767281 (Version 1)
Quarter: 2017Q3

REPORT INFORMATION
  Report Type: Spontaneous
  Country: US (occurrence: US)
  Receive Date: 20170719
  Receipt Date: 20170719
  Transmission Date: 20171127
  Serious: No
  Sender: FDA-Public Use
  Company Number: US-B.I. PHARMACEUTICALS,INC./RIDGEFIELD-2017-BI-039997

PATIENT
  Age: 69 Year
  Sex: Female

DRUGS (18)
  1. CLONAZEPAM. [Concomitant]
     Active Substance: CLONAZEPAM
     Indication: INSOMNIA
     Dosage: QD;  FORM STRENGTH: 0.5MG
     Route: 048
  2. IPRATROPIUM BROMIDE VIA NEBULIZER [Concomitant]
     Indication: IDIOPATHIC PULMONARY FIBROSIS
     Dosage: BID;
     Route: 055
  3. METOPROLOL. [Concomitant]
     Active Substance: METOPROLOL
     Indication: HYPERTENSION
     Dosage: BID;  FORM STRENGTH: 50MG
     Route: 048
  4. LYRICA [Concomitant]
     Active Substance: PREGABALIN
     Indication: NEUROPATHY PERIPHERAL
     Dosage: BID;  FORM STRENGTH: 75MG
     Route: 048
     Dates: start: 2012
  5. BENAZEPRIL [Concomitant]
     Active Substance: BENAZEPRIL HYDROCHLORIDE
     Indication: HYPERTENSION
     Dosage: QD;  FORM STRENGTH: 20MG/25MG
     Route: 048
     Dates: start: 2016
  6. POTASSIUM [Concomitant]
     Active Substance: POTASSIUM
     Indication: PRODUCT USED FOR UNKNOWN INDICATION
     Route: 048
  7. MELATONIN [Concomitant]
     Active Substance: MELATONIN
     Indication: PRODUCT USED FOR UNKNOWN INDICATION
     Dosage: EVERY NIGHT;  FORM STRENGTH: 5MG
     Route: 048
  8. MUCINEX [Concomitant]
     Active Substance: GUAIFENESIN
     Indication: PRODUCT USED FOR UNKNOWN INDICATION
     Dosage: 2 PILLS EVERY NIGHT;  FORM STRENGTH: 400MG
     Route: 048
  9. BROVANA VIA NEBULIZER [Concomitant]
     Indication: IDIOPATHIC PULMONARY FIBROSIS
     Dosage: BID;
     Route: 055
  10. ZYRTEC [Concomitant]
     Active Substance: CETIRIZINE HYDROCHLORIDE
     Indication: SEASONAL ALLERGY
     Dosage: QD;  FORM STRENGTH: 10MG
     Route: 048
  11. SINGULAIR [Concomitant]
     Active Substance: MONTELUKAST SODIUM
     Indication: SEASONAL ALLERGY
     Dosage: QD;  FORM STRENGTH: 10MG
     Route: 048
  12. LASIX [Concomitant]
     Active Substance: FUROSEMIDE
     Indication: PRODUCT USED FOR UNKNOWN INDICATION
     Dosage: QD;  FORM STRENGTH: 20MG
     Route: 048
  13. OFEV [Suspect]
     Active Substance: NINTEDANIB
     Indication: IDIOPATHIC PULMONARY FIBROSIS
     Dosage: BID;  FORM STRENGTH: 150 MG; FORMULATION: CAPSULE? ADMINISTRATION CORRECT? YES ?ACTION(S) TAKEN WITH
     Route: 048
     Dates: start: 20170527
  14. NOVALOG ON INSULIN PUMP [Concomitant]
     Indication: TYPE 1 DIABETES MELLITUS
     Dosage: DOSE CHANGES BASED ON FINGER STICK;
     Route: 058
  15. COLACE [Concomitant]
     Active Substance: DOCUSATE SODIUM
     Indication: POST PROCEDURAL COMPLICATION
     Dosage: 2 PILLS EVERY NIGHT;
     Route: 048
     Dates: start: 2011
  16. MELOXICAM. [Concomitant]
     Active Substance: MELOXICAM
     Indication: ARTHRITIS
     Dosage: QD;  FORM STRENGTH: 7.5MG
     Route: 048
  17. PULMICORT VIA NEBULIZER [Concomitant]
     Indication: IDIOPATHIC PULMONARY FIBROSIS
     Dosage: BID;
     Route: 055
  18. PROTONIX [Concomitant]
     Active Substance: PANTOPRAZOLE SODIUM
     Indication: PRODUCT USED FOR UNKNOWN INDICATION
     Dosage: QD;  FORM STRENGTH: 40MG
     Route: 048

REACTIONS (3)
  - Nausea [Recovered/Resolved]
  - Blood iron decreased [Not Recovered/Not Resolved]
  - Serum ferritin decreased [Not Recovered/Not Resolved]

NARRATIVE: CASE EVENT DATE: 20170527
